FAERS Safety Report 6300092 (Version 5)
Quarter: 2012Q4

REPORT INFORMATION
  Report Type: 
  Country: US (occurrence: US)
  Receive Date: 20070430
  Receipt Date: 20120906
  Transmission Date: 20130627
  Serious: Yes (Other)
  Sender: FDA-Public Use
  Company Number: US-ASTRAZENECA-2006UW05644

PATIENT
  Age: 68 Year
  Sex: Male
  Weight: 68.9 kg

DRUGS (8)
  1. NEXIUM [Suspect]
     Indication: BARRETT^S OESOPHAGUS
     Route: 048
  2. NEXIUM [Suspect]
     Indication: BARRETT^S OESOPHAGUS
     Route: 048
  3. PRILOSEC [Suspect]
     Route: 048
  4. PROSCAR [Concomitant]
  5. ASPIRIN [Concomitant]
     Indication: THROMBOSIS PROPHYLAXIS
  6. TETRACYCLINE [Concomitant]
  7. CO Q 10 [Concomitant]
     Indication: CARDIAC DISORDER
     Route: 048
  8. OMEGA 3 FISH OIL [Concomitant]
     Indication: CARDIAC DISORDER
     Route: 048

REACTIONS (9)
  - Precancerous cells present [Unknown]
  - Choking [Unknown]
  - Dysphonia [Unknown]
  - Gastrooesophageal reflux disease [Unknown]
  - Oesophagitis [Unknown]
  - Drug dose omission [Unknown]
  - Off label use [Unknown]
  - Drug ineffective [Unknown]
  - Barrett^s oesophagus [Unknown]
